FAERS Safety Report 24383092 (Version 1)
Quarter: 2024Q4

REPORT INFORMATION
  Report Type: Spontaneous
  Country: US (occurrence: US)
  Receive Date: 20241001
  Receipt Date: 20241001
  Transmission Date: 20250114
  Serious: No
  Sender: CATALYST PHARMA
  Company Number: US-CATALYST PHARMACEUTICALS-US-CATA-24-00303

PATIENT
  Sex: Male
  Weight: 46.712 kg

DRUGS (2)
  1. AGAMREE [Suspect]
     Active Substance: VAMOROLONE
     Indication: Duchenne muscular dystrophy
     Dosage: 4.9 ML ONCE DAILY (197 MG DAILY)
     Route: 048
     Dates: start: 20240322
  2. MULTIVITAMIN GUMMY BEARS [Concomitant]
     Indication: Hypovitaminosis
     Dosage: 1 TABLET DAILY
     Route: 065

REACTIONS (3)
  - Pollakiuria [Not Recovered/Not Resolved]
  - Frustration tolerance decreased [Not Recovered/Not Resolved]
  - Weight increased [Not Recovered/Not Resolved]

NARRATIVE: CASE EVENT DATE: 20240101
